FAERS Safety Report 10947973 (Version 2)
Quarter: 2015Q2

REPORT INFORMATION
  Report Type: Report from Study
  Country: US (occurrence: US)
  Receive Date: 20150324
  Receipt Date: 20150521
  Transmission Date: 20150821
  Serious: No
  Sender: FDA-Public Use
  Company Number: US-BEH-2015049723

PATIENT
  Sex: Female

DRUGS (1)
  1. CARIMUNE [Suspect]
     Active Substance: HUMAN IMMUNOGLOBULIN G
     Indication: PRODUCT USED FOR UNKNOWN INDICATION
     Dosage: STARTED IN 2002

REACTIONS (3)
  - Incorrect route of drug administration [Recovered/Resolved]
  - Respiratory syncytial virus infection [Recovered/Resolved]
  - Weight increased [Unknown]
